FAERS Safety Report 5605182-1 (Version None)
Quarter: 2008Q1

REPORT INFORMATION
  Report Type: 
  Country: None (occurrence: None)
  Receive Date: 20080128
  Receipt Date: 20080116
  Transmission Date: 20080703
  Serious: Yes (Other)
  Sender: FDA-Public Use
  Company Number: CH-PFIZER INC-2008006148

PATIENT
  Sex: Male

DRUGS (1)
  1. SORTIS [Suspect]
     Dosage: DAILY DOSE:20MG
     Route: 048

REACTIONS (1)
  - LIPOPROTEIN (A) INCREASED [None]
